FAERS Safety Report 9235668 (Version 3)
Quarter: 2015Q2

REPORT INFORMATION
  Report Type: Spontaneous
  Country: US (occurrence: US)
  Receive Date: 20130417
  Receipt Date: 20150525
  Transmission Date: 20150821
  Serious: Yes (Congenital Anomaly, Other)
  Sender: FDA-Public Use
  Company Number: US-JNJFOC-20130301690

PATIENT
  Sex: Female

DRUGS (2)
  1. TOPIRAMATE. [Suspect]
     Active Substance: TOPIRAMATE
     Indication: FOETAL EXPOSURE DURING PREGNANCY
     Route: 064
     Dates: start: 2001, end: 2006
  2. PRENATAL VITAMINS [Concomitant]
     Active Substance: VITAMINS
     Indication: FOETAL EXPOSURE DURING PREGNANCY
     Route: 064

REACTIONS (8)
  - Otitis media [Recovered/Resolved]
  - Stress [Unknown]
  - Premature baby [Unknown]
  - Ear disorder [Unknown]
  - Cleft lip and palate [Recovering/Resolving]
  - Foetal growth restriction [Unknown]
  - Umbilical cord abnormality [Unknown]
  - Nose deformity [Unknown]
